FAERS Safety Report 7326534-8 (Version None)
Quarter: 2011Q1

REPORT INFORMATION
  Report Type: 
  Country: None (occurrence: None)
  Receive Date: 20110302
  Receipt Date: 20110215
  Transmission Date: 20110831
  Serious: Yes (Other)
  Sender: FDA-Public Use
  Company Number: US-BAYER-201035132NA

PATIENT
  Sex: Female
  Weight: 113.38 kg

DRUGS (7)
  1. TOPAMAX [Concomitant]
  2. YASMIN [Suspect]
     Indication: PRODUCT USED FOR UNKNOWN INDICATION
     Dosage: UNK
     Dates: start: 20040401, end: 20080701
  3. WELLBUTRIN [Concomitant]
  4. LACTULOSE [Concomitant]
  5. YASMIN [Suspect]
     Dosage: UNK
     Dates: start: 20090801, end: 20091101
  6. ALBUTEROL [Concomitant]
  7. OCELLA [Suspect]
     Dosage: UNK
     Dates: start: 20080801, end: 20090701

REACTIONS (3)
  - BILIARY DYSKINESIA [None]
  - ABDOMINAL PAIN UPPER [None]
  - PAIN [None]
